FAERS Safety Report 13682559 (Version 2)
Quarter: 2017Q2

REPORT INFORMATION
  Report Type: Spontaneous
  Country: US (occurrence: US)
  Receive Date: 20170623
  Receipt Date: 20170623
  Transmission Date: 20170830
  Serious: No
  Sender: FDA-Public Use
  Company Number: US-MALLINCKRODT-T201601781

PATIENT
  Age: 61 Year
  Sex: Male

DRUGS (1)
  1. H.P. ACTHAR [Suspect]
     Active Substance: CORTICOTROPIN
     Indication: PRODUCT USED FOR UNKNOWN INDICATION
     Dosage: 40 UNITS TWICE WEEKLY
     Route: 058
     Dates: start: 201603

REACTIONS (3)
  - Mood swings [Unknown]
  - Dry mouth [Unknown]
  - Vision blurred [Unknown]

NARRATIVE: CASE EVENT DATE: 201604
